FAERS Safety Report 7293420-1 (Version None)
Quarter: 2011Q1

REPORT INFORMATION
  Report Type: 
  Country: None (occurrence: None)
  Receive Date: 20110215
  Receipt Date: 20110201
  Transmission Date: 20110831
  Serious: Yes (Hospitalization, Disabling, Other)
  Sender: FDA-Public Use
  Company Number: US-ELI_LILLY_AND_COMPANY-US201012003510

PATIENT
  Sex: Male

DRUGS (18)
  1. HUMALOG MIX 75/25 [Suspect]
     Dosage: 24 U, EACH EVENING
     Dates: start: 20000701
  2. TYLENOL W/ CODEINE [Concomitant]
     Dosage: 1000 MG, 4/D
     Dates: start: 20000801, end: 20040909
  3. CLONIDINE [Concomitant]
     Dosage: 0.2 MG, 3/D
  4. HUMALOG MIX 75/25 [Suspect]
     Indication: DIABETES MELLITUS
     Dosage: 31 U, EACH MORNING
     Dates: start: 20000701
  5. XANAX [Concomitant]
     Dosage: 5 MG, DAILY (1/D)
     Dates: start: 20000801
  6. PROZAC [Concomitant]
     Dosage: 80 MG, 3/D
     Dates: start: 20000801, end: 20040909
  7. HUMALOG MIX 75/25 [Suspect]
     Dosage: 31 U, EACH MORNING
     Dates: start: 20000701
  8. HYDRALAZINE [Concomitant]
     Dosage: 25 MG, UNK
  9. WELLBUTRIN [Concomitant]
     Dosage: 300 MG, UNK
  10. OXYCONTIN [Concomitant]
     Dosage: 80 MG, 3/D
     Dates: start: 20000801, end: 20040909
  11. K-DUR [Concomitant]
     Dosage: 20 MEQ, UNK
  12. HUMALOG MIX 75/25 [Suspect]
     Dosage: 24 U, EACH EVENING
     Dates: start: 20000701
  13. ZYPREXA [Concomitant]
     Dosage: 20 MG, 2/D
     Dates: start: 20000801, end: 20040909
  14. TOPROL-XL [Concomitant]
     Dosage: 100 MG, UNK
  15. GABAPENTIN [Concomitant]
  16. AVALIDE [Concomitant]
  17. CYCLOSPORINE [Concomitant]
     Dosage: 100 MG, DAILY (1/D)
  18. SINEQUAN [Concomitant]
     Dosage: 100 MG, EACH EVENING
     Dates: start: 20000801, end: 20040909

REACTIONS (21)
  - RIB FRACTURE [None]
  - ARTHRITIS [None]
  - DRUG INEFFECTIVE [None]
  - URTICARIA [None]
  - ASTHENIA [None]
  - DIZZINESS [None]
  - ANXIETY [None]
  - OPEN WOUND [None]
  - GLYCOSYLATED HAEMOGLOBIN INCREASED [None]
  - UPPER LIMB FRACTURE [None]
  - DIABETES MELLITUS [None]
  - LOSS OF CONSCIOUSNESS [None]
  - FALL [None]
  - TREMOR [None]
  - JOINT DISLOCATION [None]
  - CARDIAC DISORDER [None]
  - BLOOD GLUCOSE INCREASED [None]
  - SKIN DISCOLOURATION [None]
  - BLOOD PRESSURE ABNORMAL [None]
  - BLOOD GLUCOSE DECREASED [None]
  - RASH PRURITIC [None]
